FAERS Safety Report 7901317-6 (Version None)
Quarter: 2011Q4

REPORT INFORMATION
  Report Type: 
  Country: None (occurrence: None)
  Receive Date: 20111108
  Receipt Date: 20111103
  Transmission Date: 20120403
  Serious: Yes (Death, Other)
  Sender: FDA-Public Use
  Company Number: PHHY2011BR097517

PATIENT
  Sex: Male

DRUGS (1)
  1. DIOVAN HCT [Suspect]
     Indication: CARDIAC DISORDER
     Dosage: 1 DF, (160/25 MG)

REACTIONS (4)
  - NEOPLASM MALIGNANT [None]
  - GASTROINTESTINAL NEOPLASM [None]
  - CARDIAC DISORDER [None]
  - METASTASES TO LUNG [None]
